FAERS Safety Report 7959644-2 (Version None)
Quarter: 2011Q4

REPORT INFORMATION
  Report Type: 
  Country: None (occurrence: None)
  Receive Date: 20111206
  Receipt Date: 20111122
  Transmission Date: 20120403
  Serious: Yes (Disabling, Other)
  Sender: FDA-Public Use
  Company Number: JP-SANOFI-AVENTIS-2011SA007080

PATIENT
  Age: 84 Year
  Sex: Female
  Weight: 45 kg

DRUGS (10)
  1. AMLODIPINE [Concomitant]
     Indication: HYPERTENSION
     Route: 048
     Dates: start: 20101027, end: 20110216
  2. SARPOGRELATE [Concomitant]
     Indication: ARTERIOSCLEROSIS OBLITERANS
     Route: 048
     Dates: start: 20101111, end: 20110216
  3. PLAVIX [Suspect]
     Route: 048
     Dates: start: 20101024, end: 20101024
  4. CANDESARTAN CILEXETIL [Concomitant]
     Route: 048
     Dates: start: 20101024, end: 20110216
  5. CONTRAST MEDIA [Suspect]
     Indication: ARTERIOGRAM CORONARY
     Route: 051
     Dates: start: 20101024, end: 20101024
  6. ASPIRIN [Concomitant]
     Route: 048
     Dates: start: 20101024, end: 20110216
  7. ATORVASTATIN [Concomitant]
     Indication: PROPHYLAXIS
     Route: 048
     Dates: start: 20101024, end: 20110216
  8. FUROSEMIDE [Concomitant]
     Indication: HYPERTENSION
     Route: 048
     Dates: start: 20101024, end: 20110216
  9. CILOSTAZOL [Concomitant]
     Indication: ARTERIOSCLEROSIS OBLITERANS
     Route: 048
     Dates: start: 20101117, end: 20110216
  10. PLAVIX [Suspect]
     Route: 048
     Dates: start: 20101025, end: 20110216

REACTIONS (1)
  - RENAL DISORDER [None]
